FAERS Safety Report 13025017 (Version 1)
Quarter: 2016Q4

REPORT INFORMATION
  Report Type: Report from Study
  Country: DE (occurrence: DE)
  Receive Date: 20161213
  Receipt Date: 20161213
  Transmission Date: 20170207
  Serious: Yes (Hospitalization)
  Sender: FDA-Public Use
  Company Number: DE-BIOGEN-2013BI098265

PATIENT
  Age: 31 Year
  Sex: Female

DRUGS (3)
  1. ALTEROX [Concomitant]
     Indication: HYPOTHYROIDISM
     Dosage: 125MG QD AND 150MG QD IN CHANGE
     Route: 065
  2. AVONEX [Suspect]
     Active Substance: INTERFERON BETA-1A
     Indication: MULTIPLE SCLEROSIS
     Route: 030
     Dates: start: 20040101, end: 20110228
  3. AVONEX [Suspect]
     Active Substance: INTERFERON BETA-1A
     Route: 030
     Dates: start: 201309

REACTIONS (10)
  - Optic neuritis [Recovered/Resolved]
  - Hypoaesthesia [Recovered/Resolved]
  - Influenza like illness [Recovered/Resolved with Sequelae]
  - Dizziness [Recovered/Resolved]
  - Pain in extremity [Recovered/Resolved]
  - Multiple sclerosis relapse [Recovered/Resolved]
  - Depression [Recovered/Resolved with Sequelae]
  - Myalgia [Recovered/Resolved]
  - Headache [Recovered/Resolved with Sequelae]
  - Dysphagia [Recovered/Resolved]

NARRATIVE: CASE EVENT DATE: 20040101
